FAERS Safety Report 23670436 (Version 1)
Quarter: 2024Q1

REPORT INFORMATION
  Report Type: Spontaneous
  Country: DE (occurrence: DE)
  Receive Date: 20240326
  Receipt Date: 20240326
  Transmission Date: 20240410
  Serious: Yes (Other)
  Sender: FDA-Public Use
  Company Number: DE-BoehringerIngelheim-2024-BI-016950

PATIENT
  Age: 86 Year
  Sex: Female
  Weight: 90 kg

DRUGS (1)
  1. JARDIANCE [Suspect]
     Active Substance: EMPAGLIFLOZIN
     Indication: Cardiac failure
     Dosage: DAILY DOSE: 10 MILLIGRAM(S)
     Route: 048

REACTIONS (1)
  - Jaundice [Unknown]
